FAERS Safety Report 25572273 (Version 1)
Quarter: 2025Q3

REPORT INFORMATION
  Report Type: Spontaneous
  Country: US (occurrence: US)
  Receive Date: 20250717
  Receipt Date: 20250717
  Transmission Date: 20251021
  Serious: Yes (Life-Threatening, Other)
  Sender: PFIZER
  Company Number: US-PFIZER INC-PV202500084562

PATIENT
  Age: 62 Year
  Sex: Male

DRUGS (4)
  1. EPOETIN ALFA [Suspect]
     Active Substance: ERYTHROPOIETIN
     Indication: Haemorrhage
  2. ESTRADIOL [Suspect]
     Active Substance: ESTRADIOL
     Indication: Haemorrhage
  3. OCTREOTIDE [Suspect]
     Active Substance: OCTREOTIDE
     Indication: Haemorrhage
  4. IRON [Suspect]
     Active Substance: IRON
     Indication: Haemorrhage
     Route: 042

REACTIONS (2)
  - Drug ineffective for unapproved indication [Unknown]
  - Off label use [Unknown]
